FAERS Safety Report 7299635-0 (Version None)
Quarter: 2011Q1

REPORT INFORMATION
  Report Type: 
  Country: None (occurrence: None)
  Receive Date: 20110217
  Receipt Date: 20110125
  Transmission Date: 20110831
  Serious: No
  Sender: FDA-Public Use
  Company Number: US-B.I. PHARMACEUTICALS,INC./RIDGEFIELD-2010-BP-13474BP

PATIENT
  Sex: Female

DRUGS (24)
  1. SYNTHROID [Concomitant]
     Indication: THYROID DISORDER
  2. PRISTIQ [Concomitant]
  3. NASONEX [Concomitant]
  4. ALBUTEROL [Concomitant]
     Indication: ABDOMINAL DISCOMFORT
  5. OXYGEN [Concomitant]
  6. SULAR [Concomitant]
     Dosage: 17 MG
  7. FUROSEMIDE [Concomitant]
     Dosage: 20 MG
  8. PATANOL [Concomitant]
     Indication: ABDOMINAL DISCOMFORT
  9. NEXIUM [Concomitant]
     Dosage: 40 MG
  10. VYTORIN [Concomitant]
     Dates: start: 20100506
  11. ALLEGRA D 24 HOUR [Concomitant]
     Indication: HYPERSENSITIVITY
  12. CATAPRES-TTS-1 [Suspect]
     Indication: HYPERTENSION
     Dosage: 0.1 MG
     Route: 061
     Dates: start: 20100907, end: 20101014
  13. LINCARE [Concomitant]
  14. CATAPRES-TTS-1 [Suspect]
     Dosage: 0.2 MG
     Route: 061
     Dates: start: 20101015
  15. VALTURNA [Concomitant]
     Dates: start: 20100701
  16. CENTRUM [Concomitant]
  17. OSCAL 500+D [Concomitant]
  18. ASPIRIN [Concomitant]
  19. CLONAZEPAM [Concomitant]
  20. CHGLORD/CLIDI5 [Concomitant]
     Indication: ABDOMINAL DISCOMFORT
  21. ISOSORBIDE MONO ER [Concomitant]
  22. BYSTOLIC [Concomitant]
     Indication: HYPERTENSION
     Dates: start: 20100828
  23. PROVIGIL [Concomitant]
     Dosage: 100 MG
  24. LUMIGAN [Concomitant]

REACTIONS (10)
  - APPLICATION SITE PRURITUS [None]
  - EYE PAIN [None]
  - MUSCLE SPASMS [None]
  - HEADACHE [None]
  - HYPERTENSION [None]
  - SOCIAL AVOIDANT BEHAVIOUR [None]
  - BACK PAIN [None]
  - ERYTHEMA [None]
  - FEELING ABNORMAL [None]
  - APPLICATION SITE DERMATITIS [None]
